FAERS Safety Report 4285241-9 (Version None)
Quarter: 2004Q1

REPORT INFORMATION
  Report Type: 
  Country: None (occurrence: None)
  Receive Date: 20040204
  Receipt Date: 20040126
  Transmission Date: 20041129
  Serious: Yes (Life-Threatening)
  Sender: FDA-Public Use
  Company Number: US-ROCHE-357197

PATIENT
  Sex: Male

DRUGS (1)
  1. ROCALTROL [Suspect]
     Indication: HYPOPARATHYROIDISM
     Route: 048
     Dates: end: 19990615

REACTIONS (2)
  - BLOOD CALCIUM DECREASED [None]
  - CARDIAC ARREST [None]
